FAERS Safety Report 19246283 (Version 1)
Quarter: 2021Q2

REPORT INFORMATION
  Report Type: Spontaneous
  Country: ES (occurrence: ES)
  Receive Date: 20210512
  Receipt Date: 20210512
  Transmission Date: 20210717
  Serious: Yes (Other)
  Sender: FDA-Public Use
  Company Number: ES-PFIZER INC-2021491124

PATIENT
  Age: 56 Year
  Sex: Male

DRUGS (3)
  1. PYRAZINAMIDE. [Concomitant]
     Active Substance: PYRAZINAMIDE
     Indication: ALCOHOLISM
     Dosage: 1.5 G, 1X/DAY
     Route: 048
     Dates: start: 20200206
  2. MEROPENEM. [Suspect]
     Active Substance: MEROPENEM
     Indication: SUPERINFECTION
     Dosage: 1 G, SINGLE
     Route: 042
     Dates: start: 20200309, end: 20200309
  3. LEVETIRACETAM. [Concomitant]
     Active Substance: LEVETIRACETAM
     Indication: ALCOHOLISM
     Dosage: 1 G, 1X/DAY
     Route: 048
     Dates: start: 20200205

REACTIONS (4)
  - Urticaria [Recovered/Resolved]
  - Respiratory distress [Recovered/Resolved]
  - Off label use [Unknown]
  - Anaphylactic reaction [Recovered/Resolved]

NARRATIVE: CASE EVENT DATE: 20200309
